FAERS Safety Report 4896785-0 (Version None)
Quarter: 2006Q1

REPORT INFORMATION
  Report Type: 
  Country: None (occurrence: None)
  Receive Date: 20060126
  Receipt Date: 20060113
  Transmission Date: 20060701
  Serious: Yes (Death, Hospitalization)
  Sender: FDA-Public Use
  Company Number: 2005170609

PATIENT
  Age: 67 Year
  Sex: Female
  Weight: 62.8 kg

DRUGS (20)
  1. VFEND [Suspect]
     Indication: ASPERGILLOSIS
     Dosage: 720 MG (360 MG, 2 IN 1D), INTRAVENOUS; 360 MG (180 MG, 2 IN 1 D), INTRAVENOUS
     Route: 042
     Dates: start: 20051122, end: 20051122
  2. VFEND [Suspect]
     Indication: ASPERGILLOSIS
     Dosage: 720 MG (360 MG, 2 IN 1D), INTRAVENOUS; 360 MG (180 MG, 2 IN 1 D), INTRAVENOUS
     Route: 042
     Dates: start: 20051123, end: 20051124
  3. PREDNISONE [Concomitant]
  4. NIFEDIPINE [Concomitant]
  5. NIZATIDINE [Concomitant]
  6. LOXOPROFEN SODIUM (LOXOPROFEN SODIUM) [Concomitant]
  7. UBIDECARENONE (UBIDECARENONE) [Concomitant]
  8. MECOBALAMIN (MECOBALAMIN) [Concomitant]
  9. TRIAZOLAM [Concomitant]
  10. LANSOPRAZOLE [Concomitant]
  11. REBAMIPIDE (REBAMIPIDE) [Concomitant]
  12. GANCICLOVIR SODIUM [Concomitant]
  13. CEFTAZIDIME SODIUM [Concomitant]
  14. METHYLPREDNISOLONE [Concomitant]
  15. FILGRASTIM (FILGRASTIM) [Concomitant]
  16. MEROPENEM (MEROPENEM) [Concomitant]
  17. GABEXATE MESILATE (GABEXATE MESILATE) [Concomitant]
  18. MICAFUNGIN (MICAFUNGIN) [Concomitant]
  19. MAP (CONCENTRATED HUMAN RED BLOOD CELLS) (HUMAN RED BLOOD CELLS) [Concomitant]
  20. CONCENTRATED HUMAN BLOOD PLATELETS (PLATELETS, HUMAN BLOOD) [Concomitant]

REACTIONS (12)
  - ALANINE AMINOTRANSFERASE INCREASED [None]
  - ASPARTATE AMINOTRANSFERASE INCREASED [None]
  - BACTERIAL INFECTION [None]
  - CHOLESTASIS [None]
  - CONDITION AGGRAVATED [None]
  - DISSEMINATED INTRAVASCULAR COAGULATION [None]
  - DUODENAL PERFORATION [None]
  - FUNGAL INFECTION [None]
  - HEPATIC FUNCTION ABNORMAL [None]
  - PULMONARY CONGESTION [None]
  - RESPIRATORY FAILURE [None]
  - VENTRICULAR HYPERTROPHY [None]
